FAERS Safety Report 15344658 (Version 2)
Quarter: 2018Q3

REPORT INFORMATION
  Report Type: Spontaneous
  Country: US (occurrence: US)
  Receive Date: 20180903
  Receipt Date: 20180903
  Transmission Date: 20181010
  Serious: No
  Sender: FDA-Public Use
  Company Number: US-BAUSCH-BL-2018-023702

PATIENT
  Age: 73 Year
  Sex: Female

DRUGS (2)
  1. SODIUM SULFACETAMIDE [Suspect]
     Active Substance: SULFACETAMIDE SODIUM
     Indication: OFF LABEL USE
  2. SODIUM SULFACETAMIDE [Suspect]
     Active Substance: SULFACETAMIDE SODIUM
     Indication: ROSACEA
     Route: 061
     Dates: start: 20180819, end: 20180822

REACTIONS (4)
  - Product substitution issue [Recovered/Resolved]
  - Erythema [Recovering/Resolving]
  - Feeling hot [Recovering/Resolving]
  - Off label use [Recovered/Resolved]

NARRATIVE: CASE EVENT DATE: 20180819
